FAERS Safety Report 22320886 (Version 1)
Quarter: 2023Q2

REPORT INFORMATION
  Report Type: Spontaneous
  Country: US (occurrence: US)
  Receive Date: 20230515
  Receipt Date: 20230515
  Transmission Date: 20230721
  Serious: No
  Sender: FDA-Public Use
  Company Number: US-TRIS PHARMA, INC.-23US010866

PATIENT

DRUGS (2)
  1. DYANAVEL XR [Suspect]
     Active Substance: AMPHETAMINE
     Indication: Attention deficit hyperactivity disorder
     Dosage: 1 MILLILITRE
     Route: 048
  2. DYANAVEL XR [Suspect]
     Active Substance: AMPHETAMINE
     Dosage: 2 MILLILITRE
     Route: 048

REACTIONS (2)
  - Insomnia [Unknown]
  - Psychomotor hyperactivity [Unknown]
